FAERS Safety Report 4929465-3 (Version None)
Quarter: 2006Q1

REPORT INFORMATION
  Report Type: 
  Country: None (occurrence: None)
  Receive Date: 20060224
  Receipt Date: 20060215
  Transmission Date: 20060701
  Serious: Yes (Hospitalization)
  Sender: FDA-Public Use
  Company Number: DEU-2005-0001888

PATIENT
  Age: 61 Year
  Sex: Female

DRUGS (8)
  1. OXYGESIC [Suspect]
     Indication: BACK PAIN
     Dosage: SEE IMAGE
     Route: 048
     Dates: start: 20051206, end: 20051216
  2. OXYGESIC [Suspect]
     Indication: BACK PAIN
     Dosage: SEE IMAGE
     Route: 048
     Dates: start: 20051217
  3. MORPHINE [Concomitant]
  4. LORAZEPAM [Concomitant]
  5. METOPROLOL (METOPROLOL) [Concomitant]
  6. STANGYL (TRIMIPRAMINE MALEATE) [Concomitant]
  7. ZOLPIDEM TARTRATE [Concomitant]
  8. DOMINAL FORTE (PROTHIPENDYL HYDROCHLORIDE) [Concomitant]

REACTIONS (2)
  - BRONCHOSPASM [None]
  - PNEUMONIA [None]
